FAERS Safety Report 7502209-7 (Version None)
Quarter: 2011Q1

REPORT INFORMATION
  Report Type: 
  Country: None (occurrence: None)
  Receive Date: 20110318
  Receipt Date: 20100928
  Transmission Date: 20110831
  Serious: Yes (Other)
  Sender: FDA-Public Use
  Company Number: 2010SP051778

PATIENT
  Age: 52 Year
  Sex: Female

DRUGS (3)
  1. IBUPROFEN [Concomitant]
  2. PEG-INTRON [Suspect]
     Indication: HEPATITIS C
     Dosage: 120 MCG;QW
     Dates: start: 20100201
  3. RIBAVIRIN [Suspect]
     Indication: HEPATITIS C
     Dosage: 600 MG; QD; PO
     Route: 048

REACTIONS (16)
  - ABDOMINAL PAIN UPPER [None]
  - HYPOTHYROIDISM [None]
  - WEIGHT DECREASED [None]
  - NAUSEA [None]
  - VOMITING [None]
  - INFLUENZA [None]
  - FATIGUE [None]
  - WRONG TECHNIQUE IN DRUG USAGE PROCESS [None]
  - CANDIDIASIS [None]
  - PLATELET COUNT DECREASED [None]
  - RASH [None]
  - MIGRAINE [None]
  - WHITE BLOOD CELL COUNT DECREASED [None]
  - OROPHARYNGEAL PAIN [None]
  - HERPES SIMPLEX [None]
  - DIPLOPIA [None]
